FAERS Safety Report 22163493 (Version 1)
Quarter: 2023Q2

REPORT INFORMATION
  Report Type: Spontaneous
  Country: US (occurrence: US)
  Receive Date: 20230401
  Receipt Date: 20230401
  Transmission Date: 20230722
  Serious: No
  Sender: FDA-Public Use
  Company Number: US-009507513-2303USA009833

PATIENT
  Age: 36 Year
  Sex: Female

DRUGS (6)
  1. KEYTRUDA [Suspect]
     Active Substance: PEMBROLIZUMAB
     Indication: Triple negative breast cancer
     Dosage: UNK; 2 CYCLES
  2. KEYTRUDA [Suspect]
     Active Substance: PEMBROLIZUMAB
     Indication: Breast cancer stage IV
  3. CARBOPLATIN [Concomitant]
     Active Substance: CARBOPLATIN
     Indication: Breast cancer stage IV
     Dosage: UNK; 2 CYCLES
  4. CARBOPLATIN [Concomitant]
     Active Substance: CARBOPLATIN
     Indication: Triple negative breast cancer
  5. GEMCITABINE [Concomitant]
     Active Substance: GEMCITABINE
     Indication: Triple negative breast cancer
     Dosage: UNK; 2 CYCLES
  6. GEMCITABINE [Concomitant]
     Active Substance: GEMCITABINE
     Indication: Breast cancer stage IV

REACTIONS (1)
  - Maternal exposure during pregnancy [Unknown]
